FAERS Safety Report 9405999 (Version 2)
Quarter: 2013Q3

REPORT INFORMATION
  Report Type: Spontaneous
  Country: IT (occurrence: IT)
  Receive Date: 20130717
  Receipt Date: 20130810
  Transmission Date: 20140515
  Serious: Yes (Hospitalization)
  Sender: FDA-Public Use
  Company Number: IT-TEVA-418503ISR

PATIENT
  Age: 21 Year
  Sex: Male

DRUGS (2)
  1. ACICLOVIR [Suspect]
     Indication: HERPES ZOSTER
     Dosage: 2 DOSAGE FORMS DAILY;
     Route: 048
     Dates: start: 20130604, end: 20130606
  2. LYRICRA [Suspect]
     Indication: HERPES ZOSTER
     Dosage: 1 DOSAGE FORMS DAILY;
     Route: 048
     Dates: start: 20130604, end: 20130606

REACTIONS (2)
  - Asthenia [Unknown]
  - Somnolence [Unknown]
